FAERS Safety Report 8314017 (Version 2)
Quarter: 2012Q4

REPORT INFORMATION
  Report Type: 
  Country: US (occurrence: US)
  Receive Date: 20111228
  Receipt Date: 20121204
  Transmission Date: 20130627
  Serious: Yes (Hospitalization)
  Sender: FDA-Public Use
  Company Number: US-BAYER-2011-122472

PATIENT
  Age: 28 Year
  Sex: Female

DRUGS (3)
  1. YASMIN [Suspect]
     Dosage: UNK
     Dates: start: 2003, end: 20060201
  2. METANX [Concomitant]
  3. ESTROSTEP [Concomitant]

REACTIONS (7)
  - Injury [None]
  - Pain [None]
  - Deformity [None]
  - Feeling abnormal [None]
  - Anxiety [None]
  - Anhedonia [None]
  - Cerebrovascular accident [None]
